FAERS Safety Report 6113052-8 (Version None)
Quarter: 2009Q1

REPORT INFORMATION
  Report Type: 
  Country: None (occurrence: None)
  Receive Date: 20090312
  Receipt Date: 20090305
  Transmission Date: 20090719
  Serious: Yes (Other)
  Sender: FDA-Public Use
  Company Number: US-KINGPHARMUSA00001-K200900246

PATIENT
  Age: 63 Year
  Sex: Male

DRUGS (4)
  1. ALTACE [Suspect]
     Indication: HYPERTENSION
     Dosage: UNK, QD
     Route: 048
     Dates: start: 20090101, end: 20090121
  2. HYDROCHLOROTHIAZIDE [Suspect]
     Indication: HYPERTENSION
     Dosage: UNK, QD
     Route: 048
     Dates: start: 20090101, end: 20090121
  3. CARDIRENE [Concomitant]
     Indication: MYOCARDIAL INFARCTION
     Dosage: UNK, QD
     Route: 048
     Dates: start: 20080101, end: 20090122
  4. LAMICTAL [Concomitant]
     Indication: EPILEPSY
     Dosage: UNK
     Dates: start: 20070101, end: 20090122

REACTIONS (2)
  - ACIDOSIS [None]
  - HYPERKALAEMIA [None]
